FAERS Safety Report 5825569-1 (Version None)
Quarter: 2008Q3

REPORT INFORMATION
  Report Type: 
  Country: None (occurrence: None)
  Receive Date: 20080725
  Receipt Date: 20080725
  Transmission Date: 20090109
  Serious: Yes (Hospitalization)
  Sender: FDA-Public Use
  Company Number: None

PATIENT
  Sex: Male
  Weight: 69 kg

DRUGS (4)
  1. FLUOROURACIL [Suspect]
     Dosage: 5096 MG
  2. BEVACIZUMAB (RHUMAB VEGF) [Suspect]
     Dosage: 350 MG
  3. LEUCOVORIN CALCIUM [Suspect]
     Dosage: 728 MG
  4. ELOXATIN [Suspect]
     Dosage: 154.7 MG

REACTIONS (13)
  - ABDOMINAL PAIN UPPER [None]
  - BLOOD CULTURE POSITIVE [None]
  - CARDIO-RESPIRATORY ARREST [None]
  - CULTURE URINE POSITIVE [None]
  - FAECAL INCONTINENCE [None]
  - HAEMATOCHEZIA [None]
  - HAEMATOCRIT DECREASED [None]
  - HAEMOGLOBIN DECREASED [None]
  - MENTAL STATUS CHANGES [None]
  - STAPHYLOCOCCAL INFECTION [None]
  - UNRESPONSIVE TO STIMULI [None]
  - URINARY INCONTINENCE [None]
  - URINARY TRACT INFECTION [None]
